FAERS Safety Report 6365471-2 (Version None)
Quarter: 2009Q3

REPORT INFORMATION
  Report Type: 
  Country: None (occurrence: None)
  Receive Date: 20090919
  Receipt Date: 20090818
  Transmission Date: 20100115
  Serious: No
  Sender: FDA-Public Use
  Company Number: US-ABBOTT-09P-163-0591752-00

PATIENT
  Sex: Male
  Weight: 120.31 kg

DRUGS (5)
  1. HUMIRA [Suspect]
     Indication: CROHN'S DISEASE
     Dates: start: 20070814, end: 20080101
  2. HUMIRA [Suspect]
     Dates: start: 20080101
  3. CIPRO [Concomitant]
     Indication: CROHN'S DISEASE
  4. BENTYL [Concomitant]
     Indication: DRUG USE FOR UNKNOWN INDICATION
  5. FERROUS SULFATE TAB [Concomitant]
     Indication: ANAEMIA

REACTIONS (4)
  - BLOOD CHOLESTEROL INCREASED [None]
  - CORONARY ARTERY OCCLUSION [None]
  - DRUG INEFFECTIVE [None]
  - GOUT [None]
